FAERS Safety Report 9234393 (Version 5)
Quarter: 2013Q4

REPORT INFORMATION
  Report Type: Spontaneous
  Country: US (occurrence: US)
  Receive Date: 20130416
  Receipt Date: 20131125
  Transmission Date: 20140711
  Serious: Yes (Hospitalization, Disabling, Other)
  Sender: FDA-Public Use
  Company Number: US-009507513-1304USA007435

PATIENT
  Sex: Female
  Weight: 65.76 kg

DRUGS (1)
  1. NUVARING [Suspect]
     Indication: CONTRACEPTION
     Dosage: UNK
     Route: 067
     Dates: start: 2007, end: 20090417

REACTIONS (37)
  - Pleural effusion [Unknown]
  - Pulmonary embolism [Recovered/Resolved]
  - Aspiration pleural cavity [Unknown]
  - Pneumonia [Unknown]
  - Normochromic normocytic anaemia [Unknown]
  - Depression [Unknown]
  - Crohn^s disease [Unknown]
  - Fibromyalgia [Unknown]
  - Colitis ulcerative [Unknown]
  - Autoimmune disorder [Unknown]
  - Migraine [Unknown]
  - General physical condition abnormal [Unknown]
  - Anxiety [Not Recovered/Not Resolved]
  - Sleep apnoea syndrome [Recovered/Resolved]
  - Gastrooesophageal reflux disease [Not Recovered/Not Resolved]
  - Chest pain [Recovering/Resolving]
  - QRS axis abnormal [Unknown]
  - Hypercholesterolaemia [Unknown]
  - Hyperlipidaemia [Unknown]
  - Drug hypersensitivity [Unknown]
  - Drug hypersensitivity [Unknown]
  - Drug hypersensitivity [Unknown]
  - Cardiac valve disease [Unknown]
  - Mitral valve prolapse [Unknown]
  - Scarlet fever [Unknown]
  - Arthralgia [Unknown]
  - Fatigue [Unknown]
  - Blindness [Unknown]
  - Nasal septal operation [Unknown]
  - Tonsillectomy [Unknown]
  - Dyslipidaemia [Unknown]
  - Uvulopalatopharyngoplasty [Unknown]
  - Hypersomnia [Unknown]
  - Upper airway resistance syndrome [Unknown]
  - Muscle spasms [Unknown]
  - Back pain [Unknown]
  - Urinary tract infection [Unknown]
